FAERS Safety Report 5835359-1 (Version None)
Quarter: 2008Q3

REPORT INFORMATION
  Report Type: 
  Country: None (occurrence: None)
  Receive Date: 20080731
  Receipt Date: 20080724
  Transmission Date: 20090109
  Serious: Yes (Other)
  Sender: FDA-Public Use
  Company Number: CHPA2008US12568

PATIENT
  Age: 71 Year
  Sex: Female

DRUGS (1)
  1. GAS-X W/MAALOX ES A+A FASTTABS ORANGE (NCH)(CALCIUM CARBONATE, SIMETHI [Suspect]
     Indication: FLATULENCE

REACTIONS (3)
  - HAEMORRHAGE [None]
  - OVERDOSE [None]
  - THROMBOSIS [None]
